FAERS Safety Report 5490534-3 (Version None)
Quarter: 2007Q4

REPORT INFORMATION
  Report Type: 
  Country: None (occurrence: None)
  Receive Date: 20071019
  Receipt Date: 20071011
  Transmission Date: 20080405
  Serious: Yes (Hospitalization)
  Sender: FDA-Public Use
  Company Number: PHNU2007DE03140

PATIENT
  Age: 51 Year
  Sex: Male

DRUGS (3)
  1. TEGRETOL [Suspect]
     Dosage: 100-0-100 MG/DAY
     Route: 048
     Dates: start: 20070805, end: 20070801
  2. TEGRETOL [Suspect]
     Dosage: 200-0-200 MG/DAY
     Route: 048
     Dates: start: 20070830
  3. TEGRETOL [Suspect]
     Dosage: 100-0-200 MG/DAY
     Route: 048
     Dates: start: 20070801, end: 20070829

REACTIONS (7)
  - APHASIA [None]
  - BRAIN TUMOUR OPERATION [None]
  - DISTURBANCE IN ATTENTION [None]
  - FATIGUE [None]
  - NEOPLASM RECURRENCE [None]
  - VISION BLURRED [None]
  - VISUAL DISTURBANCE [None]
